FAERS Safety Report 4742279-2 (Version None)
Quarter: 2005Q3

REPORT INFORMATION
  Report Type: 
  Country: None (occurrence: None)
  Receive Date: 20050811
  Receipt Date: 20050401
  Transmission Date: 20060218
  Serious: No
  Sender: FDA-Public Use
  Company Number: US-GLAXOSMITHKLINE-A0552314A

PATIENT
  Age: 52 Year
  Sex: Female

DRUGS (2)
  1. PAXIL CR [Suspect]
     Dosage: 12.5MG VARIABLE DOSE
     Route: 048
     Dates: start: 20031101
  2. LEVOTHYROXINE SODIUM [Concomitant]

REACTIONS (1)
  - DIZZINESS [None]
